FAERS Safety Report 5570886-6 (Version None)
Quarter: 2007Q4

REPORT INFORMATION
  Report Type: 
  Country: None (occurrence: None)
  Receive Date: 20071221
  Receipt Date: 20071214
  Transmission Date: 20080405
  Serious: Yes (Hospitalization, Disabling)
  Sender: FDA-Public Use
  Company Number: FR-ASTRAZENECA-2007CG01249

PATIENT
  Age: 28525 Day
  Sex: Female

DRUGS (2)
  1. ARIMIDEX [Suspect]
     Indication: BREAST CANCER FEMALE
     Route: 048
     Dates: start: 20070709, end: 20070723
  2. CALCIUM [Concomitant]
     Indication: OSTEOPOROSIS

REACTIONS (1)
  - ARTHRITIS [None]
